FAERS Safety Report 6098885-9 (Version None)
Quarter: 2009Q1

REPORT INFORMATION
  Report Type: 
  Country: None (occurrence: None)
  Receive Date: 20090302
  Receipt Date: 20090223
  Transmission Date: 20090719
  Serious: Yes (Death, Other)
  Sender: FDA-Public Use
  Company Number: DE-CELGENEUS-062-50794-09021383

PATIENT

DRUGS (5)
  1. VIDAZA [Suspect]
     Route: 058
  2. VALPROIC ACID [Suspect]
     Route: 048
  3. ALL-TRANS RETINOIC ACID [Suspect]
     Route: 048
  4. DEXAMETHASONE [Concomitant]
     Route: 065
  5. GRANISETRON [Concomitant]
     Route: 065

REACTIONS (8)
  - ACUTE MYELOID LEUKAEMIA [None]
  - DEATH [None]
  - HAEMORRHAGE [None]
  - INFECTION [None]
  - INJECTION SITE ERYTHEMA [None]
  - NEUTROPENIA [None]
  - PNEUMONIA [None]
  - THROMBOCYTOPENIA [None]
